FAERS Safety Report 4342962-7 (Version None)
Quarter: 2004Q2

REPORT INFORMATION
  Report Type: 
  Country: None (occurrence: None)
  Receive Date: 20040421
  Receipt Date: 20040123
  Transmission Date: 20050107
  Serious: Yes (Hospitalization)
  Sender: FDA-Public Use
  Company Number: JP-MERCK-0401USA01794

PATIENT
  Age: 20 Year
  Sex: Female

DRUGS (3)
  1. ETHYL LOFLAZEPATE [Concomitant]
     Route: 048
  2. REBAMIPIDE [Concomitant]
     Route: 065
  3. CLINORIL [Suspect]
     Indication: BACK PAIN
     Route: 048

REACTIONS (2)
  - VISION BLURRED [None]
  - VISUAL ACUITY REDUCED [None]
